FAERS Safety Report 7903383-0 (Version None)
Quarter: 2011Q4

REPORT INFORMATION
  Report Type: 
  Country: None (occurrence: None)
  Receive Date: 20111109
  Receipt Date: 20111102
  Transmission Date: 20120403
  Serious: Yes (Hospitalization)
  Sender: FDA-Public Use
  Company Number: GB-AMGEN-GBRCT2011057186

PATIENT
  Age: 81 Year
  Sex: Male

DRUGS (2)
  1. BLINDED PLACEBO [Suspect]
     Indication: CARDIAC FAILURE
  2. BLINDED DARBEPOETIN ALFA [Suspect]
     Indication: CARDIAC FAILURE

REACTIONS (1)
  - CONFUSIONAL STATE [None]
